FAERS Safety Report 7234157-4 (Version None)
Quarter: 2011Q1

REPORT INFORMATION
  Report Type: 
  Country: None (occurrence: None)
  Receive Date: 20110119
  Receipt Date: 20110117
  Transmission Date: 20110831
  Serious: No
  Sender: FDA-Public Use
  Company Number: US-PFIZER INC-2011011794

PATIENT
  Sex: Male

DRUGS (25)
  1. ZITHROMAX [Concomitant]
  2. CYCLOBENZAPRINE [Concomitant]
  3. BACTROBAN [Concomitant]
  4. SYNTHROID [Concomitant]
  5. HYDROCODONE [Concomitant]
  6. HUMULIN R [Concomitant]
  7. FUROSEMIDE [Concomitant]
  8. FLONASE [Concomitant]
  9. ADVAIR [Concomitant]
  10. SORIATANE [Concomitant]
  11. GENOTROPIN [Suspect]
     Dosage: 0.6 MG, 1X/DAY
     Route: 058
  12. SPIRONOLACTONE [Concomitant]
  13. PREDNISONE [Concomitant]
  14. LOVASTATIN [Concomitant]
  15. VITAMIN D [Concomitant]
  16. IBUPROFEN [Concomitant]
  17. FLUTICASONE [Concomitant]
  18. STOOL SOFTENER [Concomitant]
  19. MUCINEX [Concomitant]
  20. LANTUS [Concomitant]
  21. RANITIDINE [Concomitant]
  22. ALBUTEROL [Concomitant]
  23. SPIRIVA [Concomitant]
  24. METOCLOPRAMIDE [Concomitant]
  25. TESTOSTERONE [Concomitant]

REACTIONS (1)
  - CONSTIPATION [None]
